FAERS Safety Report 18491031 (Version 1)
Quarter: 2020Q4

REPORT INFORMATION
  Report Type: Spontaneous
  Country: US (occurrence: US)
  Receive Date: 20201111
  Receipt Date: 20201111
  Transmission Date: 20210114
  Serious: Yes (Hospitalization)
  Sender: FDA-Public Use
  Company Number: None

PATIENT
  Sex: Male
  Weight: 75.15 kg

DRUGS (9)
  1. AMLODIPINE [Concomitant]
     Active Substance: AMLODIPINE BESYLATE
  2. LORAZEPAM. [Concomitant]
     Active Substance: LORAZEPAM
  3. VITAMIN D [Concomitant]
     Active Substance: VITAMIN D NOS
  4. MONTELUKAST [Concomitant]
     Active Substance: MONTELUKAST SODIUM
  5. TEMOZOLOMIDE. [Suspect]
     Active Substance: TEMOZOLOMIDE
     Indication: BRAIN NEOPLASM MALIGNANT
     Route: 048
     Dates: start: 20190820
  6. COLACE [Concomitant]
     Active Substance: DOCUSATE SODIUM
  7. FLONASE [Concomitant]
     Active Substance: FLUTICASONE PROPIONATE
  8. DULOXETINE. [Concomitant]
     Active Substance: DULOXETINE
  9. PROBIOTIC [Concomitant]
     Active Substance: PROBIOTICS NOS

REACTIONS (5)
  - Dehydration [None]
  - Nausea [None]
  - Decreased appetite [None]
  - Abdominal pain upper [None]
  - Dysphagia [None]
